FAERS Safety Report 16689725 (Version 2)
Quarter: 2019Q3

REPORT INFORMATION
  Report Type: Other
  Country: US (occurrence: ZA)
  Receive Date: 20190809
  Receipt Date: 20190819
  Transmission Date: 20191004
  Serious: Yes (Hospitalization)
  Sender: FDA-Public Use
  Company Number: US-SUNOVION-2019SUN003257

PATIENT
  Sex: Male

DRUGS (3)
  1. VERAHEXAL [Suspect]
     Active Substance: VERAPAMIL HYDROCHLORIDE
     Indication: HYPERTENSION
     Dosage: 240 MG, UNK
     Route: 065
  2. INDACATEROL AND GLYCOPYRROLATE [Suspect]
     Active Substance: GLYCOPYRROLATE\INDACATEROL MALEATE
     Indication: ASTHMA
     Dosage: 63 MG, UNK
     Route: 065
  3. POTASSIUM CHLORIDE. [Suspect]
     Active Substance: POTASSIUM CHLORIDE
     Indication: BLOOD POTASSIUM ABNORMAL
     Dosage: 600 MG, UNK
     Route: 048

REACTIONS (6)
  - Lung disorder [Unknown]
  - Cardiac disorder [Unknown]
  - Asthenia [Unknown]
  - Decreased appetite [Unknown]
  - Dyspnoea [Unknown]
  - Product use in unapproved indication [Unknown]
